FAERS Safety Report 24793462 (Version 7)
Quarter: 2025Q3

REPORT INFORMATION
  Report Type: Report from Study
  Country: US (occurrence: US)
  Receive Date: 20241231
  Receipt Date: 20250717
  Transmission Date: 20251021
  Serious: Yes (Other)
  Sender: UCB
  Company Number: US-UCBSA-2024067820

PATIENT
  Age: 31 Year
  Sex: Female
  Weight: 41 kg

DRUGS (12)
  1. FINTEPLA [Suspect]
     Active Substance: FENFLURAMINE
     Indication: Seizure
     Dates: start: 20210517, end: 20230314
  2. FINTEPLA [Suspect]
     Active Substance: FENFLURAMINE
     Indication: Severe myoclonic epilepsy of infancy
     Dates: start: 20220401, end: 20230401
  3. FINTEPLA [Suspect]
     Active Substance: FENFLURAMINE
     Dates: start: 20220420
  4. FINTEPLA [Suspect]
     Active Substance: FENFLURAMINE
     Dosage: 6 MILLILITER, 2X/DAY (BID)
     Dates: start: 20220426
  5. FINTEPLA [Suspect]
     Active Substance: FENFLURAMINE
     Dosage: 6 MILLILITER, 2X/DAY (BID)
     Route: 048
     Dates: start: 20220517
  6. FINTEPLA [Suspect]
     Active Substance: FENFLURAMINE
     Dates: start: 20221207, end: 20230608
  7. FINTEPLA [Suspect]
     Active Substance: FENFLURAMINE
     Dosage: 6 MILLILITER, 2X/DAY (BID)
     Dates: start: 20231215
  8. FINTEPLA [Suspect]
     Active Substance: FENFLURAMINE
     Dates: end: 20250311
  9. CLOBAZAM [Concomitant]
     Active Substance: CLOBAZAM
     Indication: Epilepsy
     Route: 048
  10. ZONISAMIDE [Concomitant]
     Active Substance: ZONISAMIDE
     Indication: Epilepsy
     Route: 048
  11. FELBAMATE [Concomitant]
     Active Substance: FELBAMATE
     Indication: Epilepsy
     Dosage: 240 MILLIGRAM, 2X/DAY (BID)
     Route: 048
  12. EPIDIOLEX [Concomitant]
     Active Substance: CANNABIDIOL
     Indication: Epilepsy
     Dosage: 350 MILLIGRAM, 2X/DAY (BID)
     Route: 048
     Dates: start: 20181109

REACTIONS (7)
  - Tricuspid valve incompetence [Recovering/Resolving]
  - Pulmonary arterial hypertension [Recovering/Resolving]
  - Mitral valve incompetence [Not Recovered/Not Resolved]
  - Aortic valve incompetence [Not Recovered/Not Resolved]
  - Dilatation ventricular [Recovered/Resolved]
  - Echocardiogram abnormal [Recovering/Resolving]
  - Hypertension [Not Recovered/Not Resolved]

NARRATIVE: CASE EVENT DATE: 20241218
